FAERS Safety Report 15277551 (Version 1)
Quarter: 2018Q3

REPORT INFORMATION
  Report Type: Spontaneous
  Country: BR (occurrence: BR)
  Receive Date: 20180814
  Receipt Date: 20180814
  Transmission Date: 20181010
  Serious: Yes (Other)
  Sender: FDA-Public Use
  Company Number: PHHY2018BR072104

PATIENT
  Sex: Female
  Weight: 80 kg

DRUGS (2)
  1. METFORMIN [Suspect]
     Active Substance: METFORMIN HYDROCHLORIDE
     Indication: DIABETES MELLITUS
     Dosage: UNK
     Route: 065
  2. GALVUS [Suspect]
     Active Substance: VILDAGLIPTIN
     Indication: DIABETES MELLITUS
     Dosage: 1 DF, BID
     Route: 048

REACTIONS (10)
  - Muscle spasms [Unknown]
  - Femur fracture [Unknown]
  - Humerus fracture [Unknown]
  - Thrombophlebitis superficial [Unknown]
  - Blood creatinine increased [Unknown]
  - Myocardial infarction [Unknown]
  - Cardiac disorder [Unknown]
  - Musculoskeletal pain [Unknown]
  - Renal disorder [Unknown]
  - Blood glucose fluctuation [Unknown]
